FAERS Safety Report 4697828-X (Version None)
Quarter: 2005Q2

REPORT INFORMATION
  Report Type: 
  Country: None (occurrence: None)
  Receive Date: 20050621
  Receipt Date: 20050621
  Transmission Date: 20051028
  Serious: No
  Sender: FDA-Public Use
  Company Number: None

PATIENT
  Age: 64 Year
  Sex: Male
  Weight: 113 kg

DRUGS (1)
  1. DULOXETINE   30MG   LILLY [Suspect]
     Indication: BIPOLAR DISORDER
     Dosage: 60MG   DAILY   ORAL
     Route: 048
     Dates: start: 20050505, end: 20050531

REACTIONS (1)
  - PRURITUS [None]
